FAERS Safety Report 4531564-5 (Version None)
Quarter: 2004Q4

REPORT INFORMATION
  Report Type: 
  Country: None (occurrence: None)
  Receive Date: 20041216
  Receipt Date: 20040421
  Transmission Date: 20050328
  Serious: Yes (Hospitalization)
  Sender: FDA-Public Use
  Company Number: 200403207

PATIENT
  Age: 63 Year
  Sex: Female

DRUGS (1)
  1. BOTOX COSMETIC [Suspect]
     Indication: MASS
     Dates: end: 20040322

REACTIONS (12)
  - ANGER [None]
  - DRUG INEFFECTIVE [None]
  - EYE OEDEMA [None]
  - EYE REDNESS [None]
  - EYELID OEDEMA [None]
  - EYELID PTOSIS [None]
  - HYPERSENSITIVITY [None]
  - INJECTION SITE ERYTHEMA [None]
  - INJECTION SITE OEDEMA [None]
  - PAROTID ABSCESS [None]
  - READING DISORDER [None]
  - SWELLING FACE [None]
